FAERS Safety Report 14268154 (Version 1)
Quarter: 2017Q4

REPORT INFORMATION
  Report Type: Spontaneous
  Country: US (occurrence: US)
  Receive Date: 20171211
  Receipt Date: 20171211
  Transmission Date: 20180321
  Serious: No
  Sender: FDA-Public Use
  Company Number: US-BAYER-2017-238680

PATIENT
  Age: 4 Year

DRUGS (7)
  1. CLARITIN [Suspect]
     Active Substance: LORATADINE
     Indication: LACRIMATION INCREASED
  2. CLARITIN [Suspect]
     Active Substance: LORATADINE
     Indication: SNEEZING
  3. CLARITIN [Suspect]
     Active Substance: LORATADINE
     Indication: EYE PRURITUS
  4. CLARITIN [Suspect]
     Active Substance: LORATADINE
     Indication: SEASONAL ALLERGY
     Dosage: 4 DF, ONCE
     Route: 048
     Dates: start: 20171207, end: 20171207
  5. CLARITIN [Suspect]
     Active Substance: LORATADINE
     Indication: RHINORRHOEA
  6. CLARITIN [Suspect]
     Active Substance: LORATADINE
     Indication: NASAL PRURITUS
  7. CLARITIN [Suspect]
     Active Substance: LORATADINE
     Indication: SEASONAL ALLERGY

REACTIONS (1)
  - Accidental exposure to product by child [Recovered/Resolved]

NARRATIVE: CASE EVENT DATE: 20171207
